FAERS Safety Report 5891412-8 (Version None)
Quarter: 2008Q3

REPORT INFORMATION
  Report Type: 
  Country: None (occurrence: None)
  Receive Date: 20080922
  Receipt Date: 20080917
  Transmission Date: 20090109
  Serious: Yes (Hospitalization, Disabling)
  Sender: FDA-Public Use
  Company Number: US-MERCK-0706USA00098

PATIENT
  Sex: Male
  Weight: 160 kg

DRUGS (6)
  1. ZOCOR [Suspect]
     Indication: BLOOD TRIGLYCERIDES INCREASED
     Route: 048
  2. GLUCOVANCE [Suspect]
     Route: 065
  3. TOPROL-XL [Concomitant]
     Route: 065
  4. LANTUS [Concomitant]
     Route: 065
  5. HUMALOG [Concomitant]
     Route: 065
  6. NEURONTIN [Concomitant]
     Route: 065

REACTIONS (2)
  - DRUG INTOLERANCE [None]
  - LIMB DISCOMFORT [None]
